FAERS Safety Report 8558589-7 (Version None)
Quarter: 2012Q3

REPORT INFORMATION
  Report Type: 
  Country: None (occurrence: None)
  Receive Date: 20120801
  Receipt Date: 20120720
  Transmission Date: 20120928
  Serious: Yes (Other)
  Sender: FDA-Public Use
  Company Number: US-BRISTOL-MYERS SQUIBB COMPANY-16789505

PATIENT
  Age: 51 Year
  Sex: Female
  Weight: 73 kg

DRUGS (1)
  1. ABATACEPT SUBQ INJECTION 125MG/ML [Suspect]
     Indication: RHEUMATOID ARTHRITIS
     Dosage: PRES. #: 21-3589320.LAST INJECTION WAS ON 14JUL2012
     Route: 058
     Dates: start: 20120331

REACTIONS (3)
  - HYPERTENSION [None]
  - HEADACHE [None]
  - GASTRIC ULCER [None]
